FAERS Safety Report 9479453 (Version 1)
Quarter: 2013Q3

REPORT INFORMATION
  Report Type: Spontaneous
  Country: US (occurrence: US)
  Receive Date: 20130827
  Receipt Date: 20130827
  Transmission Date: 20140515
  Serious: Yes (Other)
  Sender: FDA-Public Use
  Company Number: US-PFIZER INC-2013247191

PATIENT
  Age: 30 Year
  Sex: Female
  Weight: 53.06 kg

DRUGS (2)
  1. DILANTIN [Suspect]
     Indication: CONVULSION
     Dosage: 100MG IN MORNING, 50MG AT NIGHT
     Route: 048
     Dates: start: 1998, end: 20130819
  2. KEPPRA [Concomitant]
     Dosage: UNK

REACTIONS (1)
  - Convulsion [Recovered/Resolved]
